FAERS Safety Report 16500852 (Version 1)
Quarter: 2019Q3

REPORT INFORMATION
  Report Type: Report from Study
  Country: US (occurrence: US)
  Receive Date: 20190701
  Receipt Date: 20190701
  Transmission Date: 20191004
  Serious: Yes (Hospitalization, Other)
  Sender: FDA-Public Use
  Company Number: US-PFIZER INC-2019279533

PATIENT
  Age: 63 Year
  Sex: Female
  Weight: 77.98 kg

DRUGS (8)
  1. MAVYRET [Suspect]
     Active Substance: GLECAPREVIR\PIBRENTASVIR
     Dosage: 3 DF, DAILY
     Route: 048
     Dates: start: 201904, end: 20190404
  2. MAVYRET [Suspect]
     Active Substance: GLECAPREVIR\PIBRENTASVIR
     Dosage: 3 DF, DAILY
     Route: 048
     Dates: start: 20190406
  3. ZONISAMIDE. [Concomitant]
     Active Substance: ZONISAMIDE
     Dosage: UNK
  4. METOPROLOL SUCCINATE. [Concomitant]
     Active Substance: METOPROLOL SUCCINATE
     Dosage: UNK
  5. VIMPAT [Suspect]
     Active Substance: LACOSAMIDE
     Dosage: UNK
  6. BABY ASPIRIN [Concomitant]
     Active Substance: ASPIRIN
     Dosage: UNK
  7. DILANTIN [Suspect]
     Active Substance: PHENYTOIN
     Dosage: UNK
  8. MAVYRET [Suspect]
     Active Substance: GLECAPREVIR\PIBRENTASVIR
     Indication: HEPATITIS VIRAL
     Dosage: 3 DF, DAILY
     Route: 048
     Dates: start: 201903, end: 2019

REACTIONS (5)
  - Lower limb fracture [Recovered/Resolved]
  - Seizure [Recovered/Resolved]
  - Fall [Recovered/Resolved]
  - Alopecia [Not Recovered/Not Resolved]
  - Clumsiness [Unknown]

NARRATIVE: CASE EVENT DATE: 20190325
